FAERS Safety Report 7673480-6 (Version None)
Quarter: 2011Q3

REPORT INFORMATION
  Report Type: 
  Country: None (occurrence: None)
  Receive Date: 20110810
  Receipt Date: 20110729
  Transmission Date: 20111222
  Serious: Yes (Other)
  Sender: FDA-Public Use
  Company Number: US-RANBAXY-2011US-45772

PATIENT

DRUGS (10)
  1. SYNTHROID [Concomitant]
     Indication: PRODUCT USED FOR UNKNOWN INDICATION
     Dosage: UNK
     Route: 065
  2. BENICAR [Concomitant]
     Indication: PRODUCT USED FOR UNKNOWN INDICATION
     Dosage: UNK
     Route: 065
  3. CLINDAMYCIN [Suspect]
     Indication: ANIMAL BITE
     Dosage: 300 MG, TID
     Route: 048
     Dates: start: 20110517, end: 20110526
  4. CIPROFLAXACIN [Suspect]
     Indication: ANIMAL BITE
     Dosage: 1 TABLET BID
     Route: 048
     Dates: start: 20110517
  5. ZETIA [Concomitant]
     Indication: PRODUCT USED FOR UNKNOWN INDICATION
     Dosage: UNK
     Route: 065
  6. ESTRADIOL [Concomitant]
     Indication: PRODUCT USED FOR UNKNOWN INDICATION
     Dosage: UNK
     Route: 065
  7. NEXIUM [Concomitant]
     Indication: PRODUCT USED FOR UNKNOWN INDICATION
     Dosage: UNK
     Route: 065
  8. AMBIEN [Concomitant]
     Indication: PRODUCT USED FOR UNKNOWN INDICATION
     Dosage: UNK
     Route: 065
  9. PROZAC [Concomitant]
     Indication: PRODUCT USED FOR UNKNOWN INDICATION
     Dosage: UNK
     Route: 065
  10. BENADRYL [Concomitant]
     Indication: PRODUCT USED FOR UNKNOWN INDICATION
     Dosage: UNK
     Route: 065

REACTIONS (8)
  - DIZZINESS [None]
  - BRAIN OEDEMA [None]
  - VOMITING [None]
  - RASH PRURITIC [None]
  - SWOLLEN TONGUE [None]
  - VISION BLURRED [None]
  - DYSPNOEA [None]
  - ABDOMINAL DISTENSION [None]
